FAERS Safety Report 8336509-8 (Version None)
Quarter: 2012Q2

REPORT INFORMATION
  Report Type: 
  Country: None (occurrence: None)
  Receive Date: 20120504
  Receipt Date: 20120427
  Transmission Date: 20120825
  Serious: Yes (Other)
  Sender: FDA-Public Use
  Company Number: CN-BRISTOL-MYERS SQUIBB COMPANY-16555773

PATIENT
  Age: 6 Decade

DRUGS (1)
  1. BARACLUDE [Suspect]
     Route: 048

REACTIONS (1)
  - HEPATIC NEOPLASM MALIGNANT [None]
